FAERS Safety Report 6867444-X (Version None)
Quarter: 2010Q3

REPORT INFORMATION
  Report Type: 
  Country: None (occurrence: None)
  Receive Date: 20100722
  Receipt Date: 20100716
  Transmission Date: 20110219
  Serious: Yes (Death, Hospitalization)
  Sender: FDA-Public Use
  Company Number: ES-ROCHE-708258

PATIENT
  Sex: Male
  Weight: 63 kg

DRUGS (2)
  1. CAPECITABINE [Suspect]
     Dosage: 14 DAYS, LAST DOSE PRIOR TO SAE 03 MAY 2010
     Route: 048
     Dates: start: 20100428
  2. OXALIPLATIN [Suspect]
     Dosage: LAST DOSE PRIOR TO SAE: 19 MAY 2010
     Route: 042
     Dates: start: 20100428

REACTIONS (1)
  - INTESTINAL PERFORATION [None]
